FAERS Safety Report 4299957-1 (Version None)
Quarter: 2004Q1

REPORT INFORMATION
  Report Type: 
  Country: None (occurrence: None)
  Receive Date: 20040218
  Receipt Date: 20040206
  Transmission Date: 20041129
  Serious: Yes (Death)
  Sender: FDA-Public Use
  Company Number: DE-JNJFOC-20040201346

PATIENT
  Age: 52 Year
  Sex: Female
  Weight: 140 kg

DRUGS (6)
  1. RISPERDAL CONSTA [Suspect]
     Indication: DRUG USE FOR UNKNOWN INDICATION
     Dosage: SEE IMAGE
     Route: 030
     Dates: start: 20030402
  2. RISPERDAL CONSTA [Suspect]
     Indication: DRUG USE FOR UNKNOWN INDICATION
     Dosage: SEE IMAGE
     Route: 030
     Dates: start: 20030623
  3. RISPERDAL CONSTA [Suspect]
     Indication: DRUG USE FOR UNKNOWN INDICATION
     Dosage: SEE IMAGE
     Route: 030
     Dates: start: 20030701
  4. RISPERDAL [Suspect]
     Indication: DRUG USE FOR UNKNOWN INDICATION
     Dosage: 5 MG, 1 IN 1 DAY, ORAL
     Route: 048
  5. TAXILAN (PERAZINE) [Concomitant]
  6. BIPERIDEN HYDROCHLORIDE TAB [Concomitant]

REACTIONS (4)
  - DIZZINESS [None]
  - DRUG INTERACTION [None]
  - MYOCARDIAL INFARCTION [None]
  - NAUSEA [None]
